FAERS Safety Report 14197095 (Version 2)
Quarter: 2018Q1

REPORT INFORMATION
  Report Type: Report from Study
  Country: US (occurrence: US)
  Receive Date: 20171116
  Receipt Date: 20180109
  Transmission Date: 20180508
  Serious: Yes (Other)
  Sender: FDA-Public Use
  Company Number: US-ACTELION-A-US2017-161638

PATIENT
  Age: 59 Year
  Sex: Female
  Weight: 56.24 kg

DRUGS (3)
  1. UPTRAVI [Concomitant]
     Active Substance: SELEXIPAG
  2. COUMADIN [Concomitant]
     Active Substance: WARFARIN SODIUM
  3. OPSUMIT [Suspect]
     Active Substance: MACITENTAN
     Indication: PULMONARY ARTERIAL HYPERTENSION
     Dosage: 10 MG, QD
     Route: 048

REACTIONS (5)
  - Urinary tract infection [Unknown]
  - Breast pain [Unknown]
  - Glucose tolerance impaired [Recovered/Resolved]
  - Blood glucose decreased [Recovered/Resolved]
  - Sinusitis [Unknown]
